FAERS Safety Report 13427736 (Version 1)
Quarter: 2017Q2

REPORT INFORMATION
  Report Type: Not Available
  Country: TR (occurrence: TR)
  Receive Date: 20170411
  Receipt Date: 20170411
  Transmission Date: 20170830
  Serious: Yes (Other)
  Sender: FDA-Public Use
  Company Number: TR-ANIPHARMA-2017-TR-000003

PATIENT
  Age: 3 Year
  Sex: Female

DRUGS (2)
  1. THEOPHYLLINE [Suspect]
     Active Substance: THEOPHYLLINE ANHYDROUS
     Route: 048
  2. INDAPAMIDE (NON-SPECIFIC) [Suspect]
     Active Substance: INDAPAMIDE
     Route: 048

REACTIONS (4)
  - Dehydration [Unknown]
  - Generalised tonic-clonic seizure [Unknown]
  - Acute kidney injury [Unknown]
  - Respiratory failure [Unknown]
